FAERS Safety Report 6732143-1 (Version None)
Quarter: 2010Q2

REPORT INFORMATION
  Report Type: 
  Country: None (occurrence: None)
  Receive Date: 20100519
  Receipt Date: 20100518
  Transmission Date: 20101027
  Serious: Yes (Other)
  Sender: FDA-Public Use
  Company Number: CA-JNJFOC-20100205253

PATIENT
  Sex: Female
  Weight: 118.2 kg

DRUGS (4)
  1. STELARA [Suspect]
     Indication: PSORIASIS
     Route: 058
  2. STELARA [Suspect]
     Route: 058
  3. HUMALOG [Concomitant]
     Indication: TYPE 2 DIABETES MELLITUS
     Route: 058
  4. HUMULIN INSULIN [Concomitant]
     Indication: DIABETES MELLITUS
     Route: 058

REACTIONS (14)
  - ABDOMINAL PAIN [None]
  - ANGIOEDEMA [None]
  - ARTHRALGIA [None]
  - BACK PAIN [None]
  - DRY SKIN [None]
  - HEADACHE [None]
  - HYPERSENSITIVITY [None]
  - LARYNGEAL OEDEMA [None]
  - MIGRAINE WITH AURA [None]
  - MYALGIA [None]
  - PAIN IN EXTREMITY [None]
  - PRURITUS [None]
  - SKIN FISSURES [None]
  - URTICARIA [None]
